FAERS Safety Report 8908626 (Version 1)
Quarter: 2012Q4

REPORT INFORMATION
  Report Type: 
  Country: FR (occurrence: FR)
  Receive Date: 20121114
  Receipt Date: 20121114
  Transmission Date: 20130627
  Serious: Yes (Hospitalization)
  Sender: FDA-Public Use
  Company Number: FR-ASTRAZENECA-2012SE84511

PATIENT
  Age: 24030 Day
  Sex: Male

DRUGS (3)
  1. XEROQUEL [Suspect]
     Indication: BIPOLAR DISORDER
     Route: 048
  2. PRAZEPAM [Suspect]
     Indication: BIPOLAR DISORDER
     Route: 048
  3. PRIMPERAN [Suspect]
     Route: 048
     Dates: end: 201208

REACTIONS (2)
  - Constipation [Recovered/Resolved]
  - Drug ineffective [Recovered/Resolved]
